FAERS Safety Report 12329778 (Version 1)
Quarter: 2016Q2

REPORT INFORMATION
  Report Type: Spontaneous
  Country: PL (occurrence: PL)
  Receive Date: 20160503
  Receipt Date: 20160503
  Transmission Date: 20160815
  Serious: Yes (Other)
  Sender: FDA-Public Use
  Company Number: PL-BAUSCH-BL-2016-009917

PATIENT
  Age: 63 Year
  Sex: Female
  Weight: 74 kg

DRUGS (17)
  1. CALCIUM [Suspect]
     Active Substance: CALCIUM
     Indication: DERMATITIS
     Dosage: (2 AMP 10 ML)
     Route: 042
     Dates: start: 20160421, end: 20160421
  2. RELANIUM [Suspect]
     Active Substance: DIAZEPAM
     Indication: DERMATITIS
     Route: 048
     Dates: start: 20160421
  3. EFFOX LONG [Suspect]
     Active Substance: ISOSORBIDE MONONITRATE
     Indication: PROPHYLAXIS
     Route: 048
     Dates: start: 20160421
  4. METOPROLOL TARTRATE. [Suspect]
     Active Substance: METOPROLOL TARTRATE
     Indication: PROPHYLAXIS
     Route: 048
     Dates: start: 20160421
  5. SERTAGEN [Suspect]
     Active Substance: SERTRALINE HYDROCHLORIDE
     Indication: PROPHYLAXIS
     Route: 048
     Dates: start: 20160421
  6. PARACETAMOL [Suspect]
     Active Substance: ACETAMINOPHEN
     Indication: PROPHYLAXIS
     Route: 048
     Dates: start: 20160421
  7. ATARAX [Suspect]
     Active Substance: HYDROXYZINE\HYDROXYZINE HYDROCHLORIDE
     Indication: DERMATITIS
     Route: 048
     Dates: start: 20160421
  8. POLFILIN [Suspect]
     Active Substance: PENTOXIFYLLINE
     Indication: DERMATITIS
     Route: 048
     Dates: start: 20160421
  9. DEXAVEN [Suspect]
     Active Substance: DEXAMETHASONE
     Indication: DERMATITIS
     Route: 042
     Dates: start: 20160421, end: 20160421
  10. TARTRIAKSON [Suspect]
     Active Substance: CEFTRIAXONE SODIUM
     Indication: DERMATITIS
     Route: 042
     Dates: start: 20160421, end: 20160421
  11. ALERMED [Suspect]
     Active Substance: CETIRIZINE HYDROCHLORIDE
     Indication: DERMATITIS
     Route: 048
     Dates: start: 20160421
  12. LACIDOFIL [Suspect]
     Active Substance: LACTOBACILLUS ACIDOPHILUS\LACTOBACILLUS RHAMNOSUS
     Indication: DERMATITIS
     Dosage: 2 X10E9 CFU
     Route: 048
     Dates: start: 20160421
  13. MOLSIDOMINA [Suspect]
     Active Substance: MOLSIDOMINE
     Indication: PROPHYLAXIS
     Route: 048
     Dates: start: 20160421
  14. IPP [Suspect]
     Active Substance: PANTOPRAZOLE SODIUM
     Indication: PROPHYLAXIS
     Route: 048
     Dates: start: 20160421
  15. VENESCIN [Suspect]
     Active Substance: BIOFLAVONOIDS
     Indication: DERMATITIS
     Dosage: ESCULIN PLUS RUTOSIDE PLUS CHESTNUT EXTRACT, 0.5 MG PLUS 15 MG PLUS 25 MG)
     Route: 048
     Dates: start: 20160421
  16. FUROSEMIDE. [Suspect]
     Active Substance: FUROSEMIDE
     Indication: PROPHYLAXIS
     Route: 048
     Dates: start: 20160421
  17. ZOCOR [Suspect]
     Active Substance: SIMVASTATIN
     Indication: PROPHYLAXIS
     Route: 048
     Dates: start: 20160421

REACTIONS (1)
  - Seizure [Recovered/Resolved]

NARRATIVE: CASE EVENT DATE: 20160421
